FAERS Safety Report 23271132 (Version 2)
Quarter: 2024Q1

REPORT INFORMATION
  Report Type: Spontaneous
  Country: DE (occurrence: DE)
  Receive Date: 20231207
  Receipt Date: 20240124
  Transmission Date: 20240410
  Serious: Yes (Other)
  Sender: FDA-Public Use
  Company Number: DE-JNJFOC-20231176518

PATIENT
  Age: 47 Year
  Sex: Female

DRUGS (1)
  1. PONVORY [Suspect]
     Active Substance: PONESIMOD
     Indication: Product used for unknown indication
     Route: 048
     Dates: start: 2023

REACTIONS (2)
  - Myelitis [Unknown]
  - Central nervous system lesion [Unknown]
